FAERS Safety Report 22125614 (Version 1)
Quarter: 2023Q1

REPORT INFORMATION
  Report Type: Report from Study
  Country: US (occurrence: US)
  Receive Date: 20230322
  Receipt Date: 20230322
  Transmission Date: 20230418
  Serious: Yes (Hospitalization)
  Sender: FDA-Public Use
  Company Number: US-BIOVITRUM-2022-US-10870

PATIENT
  Age: 73 Year
  Sex: Female

DRUGS (2)
  1. KINERET [Suspect]
     Active Substance: ANAKINRA
     Indication: Gout
     Route: 058
     Dates: start: 20210725
  2. KINERET [Suspect]
     Active Substance: ANAKINRA
     Dates: start: 20210721

REACTIONS (4)
  - Gout [Unknown]
  - Off label use [Not Recovered/Not Resolved]
  - Needle issue [Unknown]
  - Pain [Unknown]
